FAERS Safety Report 6171777-2 (Version None)
Quarter: 2009Q2

REPORT INFORMATION
  Report Type: 
  Country: None (occurrence: None)
  Receive Date: 20090424
  Receipt Date: 20090115
  Transmission Date: 20091009
  Serious: No
  Sender: FDA-Public Use
  Company Number: SPV1-2009-00071

PATIENT
  Age: 7 Year
  Sex: Male
  Weight: 27.2 kg

DRUGS (4)
  1. VYVANSE [Suspect]
     Indication: ATTENTION DEFICIT/HYPERACTIVITY DISORDER
     Dosage: 10 MG, 1X/DAY:QD, ORAL ; 70 MG, 1X/DAY:QD, ORAL
     Route: 048
     Dates: start: 20080101, end: 20081201
  2. VYVANSE [Suspect]
     Indication: ATTENTION DEFICIT/HYPERACTIVITY DISORDER
     Dosage: 10 MG, 1X/DAY:QD, ORAL ; 70 MG, 1X/DAY:QD, ORAL
     Route: 048
     Dates: start: 20081201, end: 20090113
  3. BENADRYL [Concomitant]
  4. ALBUTEROL [Concomitant]

REACTIONS (1)
  - HYPERSENSITIVITY [None]
